FAERS Safety Report 9676303 (Version 1)
Quarter: 2013Q4

REPORT INFORMATION
  Report Type: Spontaneous
  Country: US (occurrence: US)
  Receive Date: 20131107
  Receipt Date: 20131107
  Transmission Date: 20140711
  Serious: No
  Sender: FDA-Public Use
  Company Number: US-009507513-1310USA012560

PATIENT
  Age: 80 Year
  Sex: Female

DRUGS (1)
  1. OXYTROL FOR WOMEN [Suspect]
     Indication: INCONTINENCE
     Dosage: 1 DF, ONCE
     Route: 062
     Dates: start: 201310, end: 201310

REACTIONS (4)
  - Skin reaction [Unknown]
  - Rash [Unknown]
  - Application site erythema [Unknown]
  - Application site pruritus [Unknown]
